FAERS Safety Report 17718042 (Version 1)
Quarter: 2020Q2

REPORT INFORMATION
  Report Type: Spontaneous
  Country: GB (occurrence: GB)
  Receive Date: 20200428
  Receipt Date: 20200428
  Transmission Date: 20200714
  Serious: Yes (Life-Threatening, Hospitalization, Other)
  Sender: FDA-Public Use
  Company Number: GB-SA-2020SA109083

PATIENT
  Age: 48 Year
  Sex: Female

DRUGS (1)
  1. LEMTRADA [Suspect]
     Active Substance: ALEMTUZUMAB
     Indication: MULTIPLE SCLEROSIS
     Route: 042

REACTIONS (7)
  - Hemiparesis [Recovered/Resolved]
  - Headache [Recovered/Resolved]
  - Facial paralysis [Recovered/Resolved]
  - Dizziness [Recovered/Resolved]
  - Thrombotic thrombocytopenic purpura [Unknown]
  - Diplopia [Recovered/Resolved]
  - Gait disturbance [Recovered/Resolved]
